FAERS Safety Report 23200863 (Version 1)
Quarter: 2023Q4

REPORT INFORMATION
  Report Type: Spontaneous
  Country: PT (occurrence: PT)
  Receive Date: 20231118
  Receipt Date: 20231118
  Transmission Date: 20240110
  Serious: Yes (Hospitalization, Other)
  Sender: FDA-Public Use
  Company Number: PT-GLAXOSMITHKLINE-PT2023EME132275

PATIENT
  Age: 41 Week
  Sex: Male

DRUGS (1)
  1. ACYCLOVIR [Suspect]
     Active Substance: ACYCLOVIR
     Indication: Varicella
     Dosage: 800 MILLIGRAM,*Q5H
     Route: 064

REACTIONS (2)
  - Omphalitis [Unknown]
  - Jaundice neonatal [Unknown]
